FAERS Safety Report 21942185 (Version 1)
Quarter: 2023Q1

REPORT INFORMATION
  Report Type: Report from Study
  Country: US (occurrence: US)
  Receive Date: 20230202
  Receipt Date: 20230202
  Transmission Date: 20230418
  Serious: No
  Sender: FDA-Public Use
  Company Number: US-EXELIXIS-CABO-22056910

PATIENT
  Age: 45 Year
  Sex: Female
  Weight: 52.154 kg

DRUGS (8)
  1. CABOMETYX [Suspect]
     Active Substance: CABOZANTINIB S-MALATE
     Indication: Renal cell carcinoma
     Dosage: 40 MG, QD
     Route: 048
  2. AFINITOR [Suspect]
     Active Substance: EVEROLIMUS
     Indication: Renal cell carcinoma
     Dosage: 18 MG
  3. AFINITOR [Suspect]
     Active Substance: EVEROLIMUS
     Dosage: 14 MG
  4. LENVIMA [Suspect]
     Active Substance: LENVATINIB
     Indication: Renal cell carcinoma
     Dosage: 18 MG
  5. LENVIMA [Suspect]
     Active Substance: LENVATINIB
     Dosage: 14 MG
  6. AMLODIPINE BESYLATE [Concomitant]
     Active Substance: AMLODIPINE BESYLATE
  7. CARVEDILOL [Concomitant]
     Active Substance: CARVEDILOL
  8. LEVOTHYROXINE [Concomitant]
     Active Substance: LEVOTHYROXINE

REACTIONS (6)
  - Influenza [Recovering/Resolving]
  - Tremor [Recovering/Resolving]
  - Blood glucose decreased [Recovering/Resolving]
  - Nausea [Recovering/Resolving]
  - Vomiting [Recovering/Resolving]
  - Diarrhoea [Recovering/Resolving]

NARRATIVE: CASE EVENT DATE: 20221001
